FAERS Safety Report 12936459 (Version 4)
Quarter: 2016Q4

REPORT INFORMATION
  Report Type: Report from Study
  Country: DE (occurrence: DE)
  Receive Date: 20161114
  Receipt Date: 20161219
  Transmission Date: 20170207
  Serious: Yes (Hospitalization, Other)
  Sender: FDA-Public Use
  Company Number: DE-CELGENEUS-DEU-2016102493

PATIENT
  Age: 79 Year
  Sex: Male
  Weight: 65.7 kg

DRUGS (12)
  1. DOXORUBICIN [Suspect]
     Active Substance: DOXORUBICIN
     Indication: PERIPHERAL T-CELL LYMPHOMA UNSPECIFIED
     Dosage: NOT PROVIDED
     Route: 065
     Dates: start: 20160930, end: 20161006
  2. PREDNISOLONE. [Suspect]
     Active Substance: PREDNISOLONE
     Indication: PERIPHERAL T-CELL LYMPHOMA UNSPECIFIED
     Dosage: NOT PROVIDED
     Route: 065
     Dates: start: 20160930, end: 20161006
  3. PREDNISOLONE. [Suspect]
     Active Substance: PREDNISOLONE
     Dosage: NOT PROVIDED
     Route: 065
     Dates: start: 20161021
  4. CYCLOPHOSPHAMIDE. [Suspect]
     Active Substance: CYCLOPHOSPHAMIDE
     Indication: PERIPHERAL T-CELL LYMPHOMA UNSPECIFIED
     Dosage: NOT PROVIDED
     Route: 065
     Dates: start: 20160930, end: 20161006
  5. VINCRISTIN [Suspect]
     Active Substance: VINCRISTINE
     Indication: PERIPHERAL T-CELL LYMPHOMA UNSPECIFIED
     Dosage: NOT PROVIDED
     Route: 065
     Dates: start: 20160930, end: 20161006
  6. ROMIDEPSIN [Suspect]
     Active Substance: ROMIDEPSIN
     Dosage: 10MG/M2
     Route: 041
     Dates: start: 20161111
  7. CYCLOPHOSPHAMIDE. [Suspect]
     Active Substance: CYCLOPHOSPHAMIDE
     Dosage: NOT PROVIDED
     Route: 065
     Dates: start: 20161021
  8. DOXORUBICIN [Suspect]
     Active Substance: DOXORUBICIN
     Dosage: NOT PROVIDED
     Route: 065
     Dates: start: 20161021
  9. VINCRISTIN [Suspect]
     Active Substance: VINCRISTINE
     Dosage: NOT PROVIDED
     Route: 065
     Dates: start: 20161021
  10. ROMIDEPSIN [Suspect]
     Active Substance: ROMIDEPSIN
     Indication: PERIPHERAL T-CELL LYMPHOMA UNSPECIFIED
     Dosage: 22.5MG
     Route: 041
     Dates: start: 20160903, end: 20161006
  11. ROMIDEPSIN [Suspect]
     Active Substance: ROMIDEPSIN
     Dosage: 21MG
     Route: 041
     Dates: start: 20161021, end: 20161021
  12. RED BLOOD CELLS [Concomitant]
     Active Substance: HUMAN RED BLOOD CELL
     Indication: THROMBOCYTOPENIA
     Dosage: UNKNOWN
     Route: 065

REACTIONS (3)
  - Gastric haemorrhage [Recovered/Resolved]
  - Seizure [Recovered/Resolved]
  - Thrombocytopenia [Recovered/Resolved]

NARRATIVE: CASE EVENT DATE: 20161006
